FAERS Safety Report 17896275 (Version 1)
Quarter: 2020Q2

REPORT INFORMATION
  Report Type: Spontaneous
  Country: US (occurrence: US)
  Receive Date: 20200615
  Receipt Date: 20200615
  Transmission Date: 20200714
  Serious: No
  Sender: FDA-Public Use
  Company Number: None

PATIENT
  Age: 40 Year
  Sex: Female

DRUGS (11)
  1. AJOVY [Suspect]
     Active Substance: FREMANEZUMAB-VFRM
     Indication: MIGRAINE PROPHYLAXIS
     Dosage: ?          OTHER FREQUENCY:MONTHLY;?
     Route: 058
     Dates: start: 20200106, end: 20200508
  2. MAGNESIUM 400MG [Concomitant]
     Active Substance: MAGNESIUM
  3. TIZANIDINE 2MG [Concomitant]
     Active Substance: TIZANIDINE
  4. TRAZODONE [Concomitant]
     Active Substance: TRAZODONE HYDROCHLORIDE
  5. PHENERGAN 25MG [Concomitant]
  6. FROVA 2.5MG [Concomitant]
  7. ONDANSTERON 8MG [Concomitant]
  8. OXYCODONE 10MG [Concomitant]
     Active Substance: OXYCODONE
  9. TROKENSI XR 50MG [Concomitant]
  10. SUMATRIPTAN 100MG [Concomitant]
     Active Substance: SUMATRIPTAN
  11. ZOMIG 5MG NASAL SPRAY [Concomitant]

REACTIONS (1)
  - Weight increased [None]
